FAERS Safety Report 7332690-8 (Version None)
Quarter: 2011Q1

REPORT INFORMATION
  Report Type: 
  Country: None (occurrence: None)
  Receive Date: 20110304
  Receipt Date: 20110221
  Transmission Date: 20110831
  Serious: Yes (Hospitalization)
  Sender: FDA-Public Use
  Company Number: PHHY2011PL14183

PATIENT
  Sex: Female
  Weight: 75 kg

DRUGS (6)
  1. BIOSOTAL [Concomitant]
     Dosage: UNK
  2. RAMIPRIL [Concomitant]
     Dosage: UNK
  3. AMOXICILLIN AND CLAVULANATE POTASSIUM [Suspect]
     Dosage: UNK
     Route: 048
     Dates: start: 20110121, end: 20110124
  4. APAP TAB [Concomitant]
     Dosage: UNK
  5. OSTEOMAG [Concomitant]
     Dosage: UNK
  6. WARFARIN SODIUM [Suspect]
     Indication: ATRIAL FIBRILLATION
     Dosage: UNK
     Route: 048
     Dates: start: 20090101

REACTIONS (1)
  - EPISTAXIS [None]
